FAERS Safety Report 23897360 (Version 1)
Quarter: 2024Q2

REPORT INFORMATION
  Report Type: Spontaneous
  Country: US (occurrence: None)
  Receive Date: 20240524
  Receipt Date: 20240524
  Transmission Date: 20240716
  Serious: Yes (Hospitalization)
  Sender: FDA-Public Use
  Company Number: None

PATIENT
  Sex: Male

DRUGS (5)
  1. MYCOPHENOLATE MOFETIL [Suspect]
     Active Substance: MYCOPHENOLATE MOFETIL
     Indication: Heart transplant
     Dosage: 1500MG EVERY 12 HOURS ORAL?
     Route: 048
     Dates: start: 202309
  2. TACROLIMUS [Suspect]
     Active Substance: TACROLIMUS
     Indication: Heart transplant
     Dosage: 0.5MG EVERY 12 HOURS ORAL
     Route: 048
     Dates: start: 202309
  3. HEPARIN L/L FLUSH SYR (5ML) [Concomitant]
  4. NORMAL SALINE FLUSH (5ML) [Concomitant]
  5. GAMMAGARD LIQUID [Concomitant]
     Active Substance: HUMAN IMMUNOGLOBULIN G

REACTIONS (1)
  - Full blood count abnormal [None]
